FAERS Safety Report 8394503-5 (Version None)
Quarter: 2012Q2

REPORT INFORMATION
  Report Type: 
  Country: None (occurrence: None)
  Receive Date: 20120530
  Receipt Date: 20120517
  Transmission Date: 20120825
  Serious: Yes (Hospitalization, Other)
  Sender: FDA-Public Use
  Company Number: CA-ELI_LILLY_AND_COMPANY-CA201205006520

PATIENT
  Age: 67 Year
  Sex: Female

DRUGS (6)
  1. DILAUDID [Concomitant]
     Dosage: 20 MG, PRN
     Route: 048
  2. CALCIUM [Concomitant]
     Dosage: UNK, UNKNOWN
     Route: 065
  3. FORTEO [Suspect]
     Indication: OSTEOPOROSIS
     Dosage: 20 UG, QD
     Route: 058
     Dates: start: 20110108
  4. LYRICA [Concomitant]
     Dosage: 50 MG, UNKNOWN
     Route: 065
  5. TYLENOL                                 /SCH/ [Concomitant]
     Dosage: UNK, PRN
     Route: 065
  6. VITAMIN D [Concomitant]
     Dosage: UNK, UNKNOWN
     Route: 065

REACTIONS (2)
  - HIP FRACTURE [None]
  - FALL [None]
